FAERS Safety Report 7358143-9 (Version None)
Quarter: 2011Q1

REPORT INFORMATION
  Report Type: 
  Country: None (occurrence: None)
  Receive Date: 20110317
  Receipt Date: 20110308
  Transmission Date: 20110831
  Serious: Yes (Death, Life-Threatening)
  Sender: FDA-Public Use
  Company Number: US-ELI_LILLY_AND_COMPANY-US201103002712

PATIENT
  Age: 49 Year
  Sex: Male
  Weight: 150.11 kg

DRUGS (12)
  1. NITRO                              /00003201/ [Concomitant]
     Dosage: 300 D/F, TWICE
  2. INTEGRILIN [Concomitant]
     Dosage: 20 ML, EVERY HOUR
  3. NORMAL SALINE [Concomitant]
  4. ASPIRIN [Concomitant]
     Dosage: 4 D/F, UNKNOWN
  5. INTEGRILIN [Concomitant]
     Dosage: 10 ML, EVERY HOUR
  6. NUBAIN [Concomitant]
     Dosage: 5 MG, UNKNOWN
  7. NITROGLYCERIN [Concomitant]
     Dosage: 2 D/F, UNKNOWN
     Route: 060
  8. EFFIENT [Suspect]
     Dosage: 60 MG, LOADING DOSE ONLY
     Route: 048
     Dates: start: 20110305
  9. BENADRYL [Concomitant]
     Dosage: 50 MG, UNKNOWN
  10. NITRO                              /00003201/ [Concomitant]
     Dosage: 10 ML, EVERY HOUR
  11. INTEGRILIN [Concomitant]
     Dosage: 11.3 ML, OTHER
     Route: 040
  12. HEPARIN [Concomitant]
     Dosage: 10000 U, UNKNOWN

REACTIONS (9)
  - NO THERAPEUTIC RESPONSE [None]
  - BLOOD PRESSURE DECREASED [None]
  - LIMB DISCOMFORT [None]
  - LIVEDO RETICULARIS [None]
  - DEATH [None]
  - ANXIETY [None]
  - ABDOMINAL PAIN [None]
  - CARDIO-RESPIRATORY ARREST [None]
  - PAIN IN EXTREMITY [None]
